FAERS Safety Report 6721946-5 (Version None)
Quarter: 2010Q2

REPORT INFORMATION
  Report Type: 
  Country: None (occurrence: None)
  Receive Date: 20100512
  Receipt Date: 20100506
  Transmission Date: 20101027
  Serious: Yes (Death, Hospitalization, Other)
  Sender: FDA-Public Use
  Company Number: A0839486A

PATIENT
  Age: 68 Year
  Sex: Male

DRUGS (3)
  1. PROMACTA [Suspect]
     Indication: IDIOPATHIC THROMBOCYTOPENIC PURPURA
     Dosage: 75MG UNKNOWN
     Route: 048
     Dates: start: 20090204, end: 20091201
  2. CORTICOSTEROIDS [Concomitant]
     Indication: IDIOPATHIC THROMBOCYTOPENIC PURPURA
  3. IMMUNE GLOBULIN INTRAVENOUS (HUMAN) [Concomitant]
     Indication: IDIOPATHIC THROMBOCYTOPENIC PURPURA

REACTIONS (15)
  - COLITIS ISCHAEMIC [None]
  - COLITIS ULCERATIVE [None]
  - DEEP VEIN THROMBOSIS [None]
  - DIVERTICULITIS [None]
  - DIVERTICULUM [None]
  - GASTROINTESTINAL HAEMORRHAGE [None]
  - HAEMORRHAGE [None]
  - HYPERTENSION [None]
  - HYPOTENSION [None]
  - INTESTINAL ISCHAEMIA [None]
  - LARGE INTESTINE PERFORATION [None]
  - LIVER DISORDER [None]
  - MULTI-ORGAN FAILURE [None]
  - NEUTROPENIA [None]
  - THROMBOSIS [None]
